FAERS Safety Report 20554742 (Version 1)
Quarter: 2022Q1

REPORT INFORMATION
  Report Type: Spontaneous
  Country: US (occurrence: None)
  Receive Date: 20220304
  Receipt Date: 20220304
  Transmission Date: 20220424
  Serious: Yes (Other)
  Sender: FDA-Public Use
  Company Number: None

PATIENT
  Age: 83 Year
  Sex: Female
  Weight: 92.34 kg

DRUGS (6)
  1. IBRANCE [Suspect]
     Active Substance: PALBOCICLIB
     Indication: Breast cancer
     Dosage: FREQUENCY : DAILY;?
     Route: 048
     Dates: start: 20220210
  2. EXEMESTANE [Concomitant]
     Active Substance: EXEMESTANE
  3. ELIQUIS [Concomitant]
     Active Substance: APIXABAN
  4. FEBUXOSTAT [Concomitant]
     Active Substance: FEBUXOSTAT
  5. AMIODARONE [Concomitant]
     Active Substance: AMIODARONE
  6. LEVOTHYROXINE [Concomitant]
     Active Substance: LEVOTHYROXINE

REACTIONS (1)
  - White blood cell count decreased [None]

NARRATIVE: CASE EVENT DATE: 20220304
